FAERS Safety Report 6367694-5 (Version None)
Quarter: 2009Q3

REPORT INFORMATION
  Report Type: 
  Country: None (occurrence: None)
  Receive Date: 20090916
  Receipt Date: 20090909
  Transmission Date: 20100115
  Serious: Yes (Other)
  Sender: FDA-Public Use
  Company Number: CHPA2009US18368

PATIENT
  Sex: Male

DRUGS (2)
  1. BENEFIBER UNKNOWN (NCH) (UNKNOWN) UNKNOWN  ORAL [Suspect]
     Indication: CONSTIPATION
     Dosage: ORAL
     Route: 048
     Dates: start: 20090908, end: 20090908
  2. MINOCYCLINE HCL [Suspect]
     Dosage: ORAL
     Route: 048

REACTIONS (7)
  - DYSPNOEA [None]
  - ERYTHEMA [None]
  - HAEMORRHAGE [None]
  - PRURITUS GENERALISED [None]
  - RASH [None]
  - THROAT TIGHTNESS [None]
  - TONGUE DISCOLOURATION [None]
